FAERS Safety Report 8382143-3 (Version None)
Quarter: 2012Q2

REPORT INFORMATION
  Report Type: 
  Country: None (occurrence: None)
  Receive Date: 20120524
  Receipt Date: 20120516
  Transmission Date: 20120825
  Serious: Yes (Life-Threatening, Other)
  Sender: FDA-Public Use
  Company Number: CH-PFIZER INC-2012120681

PATIENT
  Age: 63 Year
  Sex: Female

DRUGS (10)
  1. PAROXETINE [Interacting]
     Dosage: 20 MG, 1X/DAY
     Route: 048
  2. PAROXETINE [Interacting]
     Dosage: UNK
     Route: 048
     Dates: start: 20120305, end: 20120305
  3. ZOPICLONE [Concomitant]
     Dosage: 7.5 MG, 1X/DAY
     Route: 048
  4. ALPRAZOLAM [Suspect]
     Dosage: UNK
     Route: 048
     Dates: start: 20120305, end: 20120305
  5. CITALOPRAM HYDROBROMIDE [Interacting]
     Dosage: UNK
     Route: 048
     Dates: start: 20120301, end: 20120305
  6. QUETIAPINE FUMARATE [Interacting]
     Dosage: UNK
     Route: 048
     Dates: start: 20120301
  7. MIRTAZAPINE [Concomitant]
     Dosage: UNK
     Route: 048
  8. PSEUDOEPHEDRINE [Concomitant]
     Dosage: UNK
     Route: 048
  9. ALPRAZOLAM [Suspect]
     Dosage: 0.5 MG, 1X/DAY
     Route: 048
  10. BROMAZEPAM [Concomitant]
     Dosage: UNK

REACTIONS (7)
  - ATRIAL FIBRILLATION [None]
  - SUICIDE ATTEMPT [None]
  - ELECTROCARDIOGRAM QT PROLONGED [None]
  - DRUG INTERACTION [None]
  - LOSS OF CONSCIOUSNESS [None]
  - VENTRICULAR TACHYCARDIA [None]
  - PNEUMONIA ASPIRATION [None]
